FAERS Safety Report 15685202 (Version 1)
Quarter: 2018Q4

REPORT INFORMATION
  Report Type: Spontaneous
  Country: DE (occurrence: DE)
  Receive Date: 20181204
  Receipt Date: 20181204
  Transmission Date: 20190205
  Serious: Yes (Other)
  Sender: FDA-Public Use
  Company Number: DE-PFIZER INC-2018409592

PATIENT
  Age: 31 Year
  Sex: Male

DRUGS (3)
  1. ARIPIPRAZOLE. [Concomitant]
     Active Substance: ARIPIPRAZOLE
     Dosage: 30 MG, 1X/DAY
  2. LEVETIRACETAM. [Suspect]
     Active Substance: LEVETIRACETAM
     Dosage: 250 MG, 2X/DAY
  3. ECSTASY [Suspect]
     Active Substance: MIDOMAFETAMINE

REACTIONS (3)
  - Drug ineffective [Unknown]
  - Schizophreniform disorder [Recovered/Resolved]
  - Narcolepsy [Unknown]
